FAERS Safety Report 17917849 (Version 1)
Quarter: 2020Q2

REPORT INFORMATION
  Report Type: Spontaneous
  Country: BR (occurrence: BR)
  Receive Date: 20200619
  Receipt Date: 20200619
  Transmission Date: 20200714
  Serious: Yes (Other)
  Sender: FDA-Public Use
  Company Number: BR-OTSUKA-2018_032624

PATIENT
  Age: 34 Year
  Sex: Male

DRUGS (2)
  1. BUSULFAN. [Suspect]
     Active Substance: BUSULFAN
     Indication: BONE MARROW TRANSPLANT
     Dosage: 3.2 MG/KG, UNK
     Route: 042
  2. CYCLOPHOSPHAMID [Concomitant]
     Active Substance: CYCLOPHOSPHAMIDE
     Indication: PRODUCT USED FOR UNKNOWN INDICATION
     Dosage: UNK
     Route: 065

REACTIONS (3)
  - Ascites [Unknown]
  - Venoocclusive disease [Unknown]
  - Transaminases increased [Unknown]

NARRATIVE: CASE EVENT DATE: 20180921
